FAERS Safety Report 14848421 (Version 2)
Quarter: 2018Q2

REPORT INFORMATION
  Report Type: Spontaneous
  Country: TW (occurrence: TW)
  Receive Date: 20180504
  Receipt Date: 20180511
  Transmission Date: 20180711
  Serious: Yes (Death, Hospitalization, Other)
  Sender: FDA-Public Use
  Company Number: TW-ELI_LILLY_AND_COMPANY-TW201805001111

PATIENT
  Sex: Male

DRUGS (2)
  1. ALIMTA [Suspect]
     Active Substance: PEMETREXED DISODIUM
     Indication: LUNG ADENOCARCINOMA
     Dosage: UNK, UNKNOWN
     Route: 065
     Dates: start: 20171211
  2. CISPLATIN. [Suspect]
     Active Substance: CISPLATIN
     Indication: LUNG ADENOCARCINOMA
     Dosage: UNK
     Dates: start: 20171211

REACTIONS (15)
  - Cholecystitis acute [Unknown]
  - Abdominal pain upper [Unknown]
  - Diarrhoea [Unknown]
  - Thrombocytopenia [Unknown]
  - Dizziness [Unknown]
  - Malaise [Unknown]
  - Asthenia [Unknown]
  - Cholelithiasis [Unknown]
  - Hypertension [Unknown]
  - Acute respiratory failure [Unknown]
  - Dehydration [Unknown]
  - Neutropenia [Unknown]
  - Acute kidney injury [Unknown]
  - Anaemia [Unknown]
  - Septic shock [Fatal]
